FAERS Safety Report 5504920-6 (Version None)
Quarter: 2007Q4

REPORT INFORMATION
  Report Type: 
  Country: None (occurrence: None)
  Receive Date: 20071102
  Receipt Date: 20071030
  Transmission Date: 20080405
  Serious: Yes (Death)
  Sender: FDA-Public Use
  Company Number: PHBS2007AR18091

PATIENT
  Age: 80 Year
  Sex: Female

DRUGS (2)
  1. ZOMETA [Suspect]
     Indication: OSTEOPOROSIS
     Dosage: ONCE A YEAR
     Dates: start: 20050401
  2. ZOMETA [Suspect]
     Dates: start: 20060401

REACTIONS (2)
  - ABDOMINAL PAIN [None]
  - NON-HODGKIN'S LYMPHOMA [None]
